FAERS Safety Report 6570891-7 (Version None)
Quarter: 2010Q1

REPORT INFORMATION
  Report Type: 
  Country: None (occurrence: None)
  Receive Date: 20100204
  Receipt Date: 20100125
  Transmission Date: 20100710
  Serious: Yes (Hospitalization)
  Sender: FDA-Public Use
  Company Number: IT-ABBOTT-10P-083-0623879-00

PATIENT
  Sex: Female

DRUGS (1)
  1. ERITROCINA TABLETS [Suspect]
     Indication: VAGINAL INFECTION
     Dates: start: 20091219, end: 20091219

REACTIONS (3)
  - DRY MOUTH [None]
  - DYSPNOEA [None]
  - THROAT TIGHTNESS [None]
